FAERS Safety Report 4574556-2 (Version None)
Quarter: 2005Q1

REPORT INFORMATION
  Report Type: 
  Country: None (occurrence: None)
  Receive Date: 20050208
  Receipt Date: 20031218
  Transmission Date: 20050727
  Serious: No
  Sender: FDA-Public Use
  Company Number: US-GLAXOSMITHKLINE-A0492131A

PATIENT
  Age: 33 Year
  Sex: Female
  Weight: 75.9 kg

DRUGS (2)
  1. PAXIL [Suspect]
     Indication: DEPRESSION
     Route: 048
     Dates: start: 20010214
  2. SYNTHROID [Concomitant]

REACTIONS (1)
  - DRUG WITHDRAWAL SYNDROME [None]
